FAERS Safety Report 5369974-9 (Version None)
Quarter: 2007Q2

REPORT INFORMATION
  Report Type: 
  Country: None (occurrence: None)
  Receive Date: 20070626
  Receipt Date: 20070619
  Transmission Date: 20071010
  Serious: Yes (Other)
  Sender: FDA-Public Use
  Company Number: PHEH2007US09067

PATIENT
  Age: 74 Year
  Sex: Female
  Weight: 74.376 kg

DRUGS (3)
  1. TEKTURNA [Suspect]
     Indication: HYPERTENSION
     Dosage: 150 MG, QD
     Route: 048
     Dates: start: 20070607, end: 20070614
  2. FENOFIBRATE [Concomitant]
  3. TOPROL-XL [Concomitant]

REACTIONS (7)
  - ASTHENIA [None]
  - CARDIAC FLUTTER [None]
  - EYE PAIN [None]
  - HEADACHE [None]
  - MUSCLE SPASMS [None]
  - PAIN IN JAW [None]
  - TREMOR [None]
